FAERS Safety Report 4760717-6 (Version None)
Quarter: 2005Q3

REPORT INFORMATION
  Report Type: 
  Country: None (occurrence: None)
  Receive Date: 20050826
  Receipt Date: 20050315
  Transmission Date: 20060218
  Serious: Yes (Other)
  Sender: FDA-Public Use
  Company Number: USA-2005-0019399

PATIENT
  Age: 19 Year
  Sex: Male

DRUGS (4)
  1. OXYCODONE HCL [Suspect]
     Dosage: UNKNOWN
     Route: 065
  2. METHADONE HCL [Suspect]
     Dosage: UNKOWN
     Route: 065
  3. WELLBUTRIN [Concomitant]
  4. KLONOPIN [Concomitant]

REACTIONS (3)
  - IMPAIRED DRIVING ABILITY [None]
  - POLYSUBSTANCE ABUSE [None]
  - ROAD TRAFFIC ACCIDENT [None]
